FAERS Safety Report 13299851 (Version 3)
Quarter: 2018Q4

REPORT INFORMATION
  Report Type: Spontaneous
  Country: US (occurrence: US)
  Receive Date: 20170306
  Receipt Date: 20181030
  Transmission Date: 20190204
  Serious: No
  Sender: FDA-Public Use
  Company Number: US-ACTELION-A-NJ2016-147484

PATIENT
  Age: 72 Year
  Sex: Female
  Weight: 77.98 kg

DRUGS (3)
  1. TRACLEER [Concomitant]
     Active Substance: BOSENTAN
     Indication: PULMONARY ARTERIAL HYPERTENSION
  2. REVATIO [Concomitant]
     Active Substance: SILDENAFIL CITRATE
  3. VELETRI [Suspect]
     Active Substance: EPOPROSTENOL
     Indication: PULMONARY ARTERIAL HYPERTENSION
     Dosage: 33 NG/KG, PER MIN
     Route: 042
     Dates: start: 20161130

REACTIONS (6)
  - Fall [Unknown]
  - Infusion site infection [Recovering/Resolving]
  - Device dislocation [Unknown]
  - Asthenia [Unknown]
  - Dizziness [Unknown]
  - Catheter management [Unknown]

NARRATIVE: CASE EVENT DATE: 20181015
